FAERS Safety Report 16491049 (Version 2)
Quarter: 2019Q3

REPORT INFORMATION
  Report Type: Report from Study
  Country: JP (occurrence: JP)
  Receive Date: 20190628
  Receipt Date: 20190725
  Transmission Date: 20191004
  Serious: Yes (Death, Hospitalization, Other)
  Sender: FDA-Public Use
  Company Number: JP-BRISTOL-MYERS SQUIBB COMPANY-BMS-2019-023166

PATIENT
  Age: 67 Year
  Sex: Male

DRUGS (3)
  1. NIVOLUMAB [Suspect]
     Active Substance: NIVOLUMAB
     Indication: METASTATIC RENAL CELL CARCINOMA
     Dosage: 240 MILLIGRAM
     Route: 041
     Dates: start: 20181001, end: 20181226
  2. IPILIMUMAB [Suspect]
     Active Substance: IPILIMUMAB
     Indication: METASTATIC RENAL CELL CARCINOMA
     Dosage: 60 MILLIGRAM
     Route: 041
     Dates: start: 20181001, end: 20181203
  3. NEXAVAR [Concomitant]
     Active Substance: SORAFENIB
     Indication: PRODUCT USED FOR UNKNOWN INDICATION
     Dosage: UNK
     Route: 048
     Dates: start: 20190123, end: 20190221

REACTIONS (6)
  - Pyrexia [Unknown]
  - Adrenal disorder [Recovering/Resolving]
  - Productive cough [Unknown]
  - Hypopituitarism [Unknown]
  - Malignant neoplasm progression [Fatal]
  - Rales [Unknown]

NARRATIVE: CASE EVENT DATE: 201812
